FAERS Safety Report 21163527 (Version 1)
Quarter: 2022Q3

REPORT INFORMATION
  Report Type: Other
  Country: US (occurrence: None)
  Receive Date: 20220802
  Receipt Date: 20220802
  Transmission Date: 20221026
  Serious: Yes (Hospitalization)
  Sender: FDA-Public Use
  Company Number: US-ROCHE-1932943

PATIENT
  Sex: Male

DRUGS (30)
  1. RITUXAN [Suspect]
     Active Substance: RITUXIMAB
     Indication: Multiple sclerosis
     Dosage: DATE OF TREATMENT 24/JUL/17, 22/JAN/18, 23/JUL/18
     Route: 065
  2. OCREVUS [Suspect]
     Active Substance: OCRELIZUMAB
     Indication: Multiple sclerosis
     Route: 042
  3. ACETAMINOPHEN [Concomitant]
     Active Substance: ACETAMINOPHEN
  4. DIPHENHYDRAMINE [Concomitant]
     Active Substance: DIPHENHYDRAMINE
  5. METOPROLOLTARTRAT [Concomitant]
  6. LIPITOR [Concomitant]
     Active Substance: ATORVASTATIN CALCIUM
  7. BACLOFEN [Concomitant]
     Active Substance: BACLOFEN
  8. BENAZEPRIL HYDROCHLORIDE [Concomitant]
     Active Substance: BENAZEPRIL HYDROCHLORIDE
     Route: 048
     Dates: start: 20170923
  9. BETHANECHOL CHLORIDE [Concomitant]
     Active Substance: BETHANECHOL CHLORIDE
     Route: 048
     Dates: start: 20161201
  10. DEBROX EAR DROPS [Concomitant]
     Dosage: INSTIL 5 DROPS IN BOTH EARS
  11. AMPYRA [Concomitant]
     Active Substance: DALFAMPRIDINE
     Dosage: 1 TABLET TWICE DAILY
     Route: 048
     Dates: start: 20220321
  12. VALIUM [Concomitant]
     Active Substance: DIAZEPAM
     Route: 048
     Dates: start: 20161227
  13. ALLEGRA ALLERGY [Concomitant]
     Active Substance: FEXOFENADINE HYDROCHLORIDE
     Route: 048
     Dates: start: 20210612
  14. FLONASE [Concomitant]
     Active Substance: FLUTICASONE PROPIONATE
     Dosage: 1 SPRAY INTO NOSTRIL DAILY
     Route: 045
  15. FOLIC ACID [Concomitant]
     Active Substance: FOLIC ACID
     Route: 048
     Dates: start: 20210615
  16. NEURONTIN [Concomitant]
     Active Substance: GABAPENTIN
     Route: 048
  17. ANUSOL-HC [HYDROCORTISONE ACETATE] [Concomitant]
     Route: 054
     Dates: start: 20200220
  18. NOVOLOG [Concomitant]
     Active Substance: INSULIN ASPART
     Dates: start: 20150204
  19. LEVEMIR [Concomitant]
     Active Substance: INSULIN DETEMIR
     Dosage: 1 INJECTION 10 UNIT AT BEDTIME
     Route: 058
  20. IPRATROPIUM BROMIDE [Concomitant]
     Active Substance: IPRATROPIUM BROMIDE
     Route: 045
     Dates: start: 20180209
  21. LIDOCAINE HYDROCHLORIDE [Concomitant]
     Active Substance: LIDOCAINE HYDROCHLORIDE
     Route: 066
     Dates: start: 20190808
  22. METFORMIN HYDROCHLORIDE [Concomitant]
     Active Substance: METFORMIN HYDROCHLORIDE
     Dosage: 2 TAB TWICE A DAILY
     Route: 048
     Dates: start: 20140531
  23. METHOCARBAMOL [Concomitant]
     Active Substance: METHOCARBAMOL
     Dosage: 2 TAB BY MOUTH AT BEDTIME
     Route: 048
     Dates: start: 20210311
  24. METOPROLOL TARTRATE [Concomitant]
     Active Substance: METOPROLOL TARTRATE
     Route: 048
  25. PROVIGIL TABLET [Concomitant]
     Dosage: 1 TAB TWICE A DAY
     Route: 048
  26. NABUMETONE [Concomitant]
     Active Substance: NABUMETONE
     Dosage: 1 TAB TWICE A DAY
     Route: 048
     Dates: start: 20180402
  27. NARCAN [Concomitant]
     Active Substance: NALOXONE HYDROCHLORIDE
     Dosage: 4MG/0.1 ML LIQUID
     Route: 045
  28. OMEPRAZOLE [Concomitant]
     Active Substance: OMEPRAZOLE
     Route: 048
  29. VIAGRA [Concomitant]
     Active Substance: SILDENAFIL CITRATE
     Route: 048
     Dates: start: 20160511
  30. THIAMINE HYDROCHLORIDE [Concomitant]
     Active Substance: THIAMINE HYDROCHLORIDE
     Route: 048
     Dates: start: 20210615

REACTIONS (10)
  - Off label use [Unknown]
  - Urinary tract infection [Unknown]
  - Sinusitis [Unknown]
  - Ear infection [Unknown]
  - Wound infection [Unknown]
  - Asthenia [Unknown]
  - Movement disorder [Unknown]
  - Muscle spasms [Unknown]
  - Blood glucose increased [Unknown]
  - Constipation [Unknown]
